FAERS Safety Report 4638022-8 (Version None)
Quarter: 2005Q2

REPORT INFORMATION
  Report Type: 
  Country: None (occurrence: None)
  Receive Date: 20050415
  Receipt Date: 20050407
  Transmission Date: 20051028
  Serious: Yes (Other)
  Sender: FDA-Public Use
  Company Number: 2005056513

PATIENT
  Age: 54 Year
  Sex: Female
  Weight: 108 kg

DRUGS (8)
  1. LIPITOR [Suspect]
     Indication: BLOOD CHOLESTEROL INCREASED
     Dosage: ORAL
     Route: 048
     Dates: start: 20030901, end: 20050104
  2. ORLISTAT (ORLISTAT) [Suspect]
     Indication: WEIGHT CONTROL
     Dosage: ORAL
     Route: 048
     Dates: start: 20041103, end: 20050104
  3. LISINOPRIL [Concomitant]
  4. METFORMIN HCL [Concomitant]
  5. VALPROATE SODIUM [Concomitant]
  6. GLYBURIDE [Concomitant]
  7. IBUPROFEN [Concomitant]
  8. FUROSEMIDE [Concomitant]

REACTIONS (6)
  - BLOOD ALKALINE PHOSPHATASE INCREASED [None]
  - BLOOD BILIRUBIN INCREASED [None]
  - BLOOD CREATININE INCREASED [None]
  - DRUG INTERACTION [None]
  - GAMMA-GLUTAMYLTRANSFERASE INCREASED [None]
  - JAUNDICE [None]
